FAERS Safety Report 12984040 (Version 1)
Quarter: 2016Q4

REPORT INFORMATION
  Report Type: Report from Study
  Country: JP (occurrence: JP)
  Receive Date: 20161129
  Receipt Date: 20161129
  Transmission Date: 20170207
  Serious: Yes (Death)
  Sender: FDA-Public Use
  Company Number: JP-PFIZER INC-2016545084

PATIENT

DRUGS (3)
  1. TRASTUZUMAB [Suspect]
     Active Substance: TRASTUZUMAB
     Dosage: SUBSEQUENCT, 6 MG/KG, ADMINISTERED EVERY 3 WEEKS BY INTRAVENOUS INFUSION
     Route: 041
  2. TRASTUZUMAB [Suspect]
     Active Substance: TRASTUZUMAB
     Indication: HER-2 POSITIVE GASTRIC CANCER
     Dosage: INITIAL 8 MG/KG, ADMINISTERED EVERY 3 WEEKS BY INTRAVENOUS INFUSION
     Route: 041
  3. PACLITAXEL. [Suspect]
     Active Substance: PACLITAXEL
     Indication: HER-2 POSITIVE GASTRIC CANCER
     Dosage: 80 MG/M2, WEEKLY, (OVER 60 MIN ONCE WEEKLY FOR 3 WEEKS)
     Route: 041

REACTIONS (1)
  - Pulmonary fibrosis [Fatal]
